FAERS Safety Report 5074210-7 (Version None)
Quarter: 2006Q3

REPORT INFORMATION
  Report Type: 
  Country: None (occurrence: None)
  Receive Date: 20060803
  Receipt Date: 20060725
  Transmission Date: 20061208
  Serious: Yes (Other)
  Sender: FDA-Public Use
  Company Number: 2006-05-1415

PATIENT
  Age: 49 Year
  Sex: Male
  Weight: 77 kg

DRUGS (7)
  1. INTRON A [Suspect]
     Indication: METASTATIC MALIGNANT MELANOMA
     Dosage: 38-19 MU* INTRAVENOUS
     Route: 042
     Dates: start: 20050829, end: 20060418
  2. NORVASC [Concomitant]
  3. ATIVAN [Concomitant]
  4. ZOFRAN [Concomitant]
  5. ACETAMINOPHEN [Concomitant]
  6. CAL-D-VITA (CALCIUM CARBONATE/CHOLECALCIFEROL) [Concomitant]
  7. K-DUR 10 [Concomitant]

REACTIONS (4)
  - CARDIAC DISORDER [None]
  - DYSPNOEA [None]
  - GALLOP RHYTHM PRESENT [None]
  - TACHYCARDIA [None]
